APPROVED DRUG PRODUCT: ATORVASTATIN CALCIUM
Active Ingredient: ATORVASTATIN CALCIUM
Strength: EQ 80MG BASE
Dosage Form/Route: TABLET;ORAL
Application: A213853 | Product #004 | TE Code: BX
Applicant: UMEDICA LABORATORIES PRIVATE LTD
Approved: Aug 19, 2020 | RLD: No | RS: No | Type: RX